FAERS Safety Report 8421853-6 (Version None)
Quarter: 2012Q2

REPORT INFORMATION
  Report Type: 
  Country: None (occurrence: None)
  Receive Date: 20120605
  Receipt Date: 20120605
  Transmission Date: 20120825
  Serious: Yes (Life-Threatening, Hospitalization, Disabling)
  Sender: FDA-Public Use
  Company Number: None

PATIENT
  Sex: Female
  Weight: 113.3993 kg

DRUGS (2)
  1. AZATHIOPRINE [Suspect]
     Indication: CARPAL TUNNEL SYNDROME
     Dosage: 50MG 1 A DAY
     Dates: start: 20091101, end: 20100105
  2. AZATHIOPRINE [Suspect]
     Indication: ARTHRITIS
     Dosage: 50MG 1 A DAY
     Dates: start: 20091101, end: 20100105

REACTIONS (2)
  - PULMONARY FIBROSIS [None]
  - DYSPNOEA [None]
